FAERS Safety Report 16768401 (Version 1)
Quarter: 2019Q3

REPORT INFORMATION
  Report Type: Spontaneous
  Country: GB (occurrence: GB)
  Receive Date: 20190903
  Receipt Date: 20190903
  Transmission Date: 20191005
  Serious: Yes (Other)
  Sender: FDA-Public Use
  Company Number: GB-BAUSCH-BL-2019-025138

PATIENT
  Age: 64 Year
  Sex: Female
  Weight: 56.24 kg

DRUGS (1)
  1. PLENVU [Suspect]
     Active Substance: ASCORBIC ACID\POLYETHYLENE GLYCOL 3350\POTASSIUM CHLORIDE\SODIUM ASCORBATE\SODIUM CHLORIDE\SODIUM SULFATE
     Indication: BOWEL PREPARATION
     Dosage: DOSE WITH 500 ML AT 6 PM AND AGAIN AT 9 PM. 2 SACHETS OF POWDER WITH 500 ML OF WATER
     Route: 048
     Dates: start: 20190806

REACTIONS (4)
  - Diarrhoea [Recovered/Resolved]
  - Dizziness [Unknown]
  - Blood pressure increased [Recovered/Resolved]
  - Abdominal distension [Recovered/Resolved]

NARRATIVE: CASE EVENT DATE: 201908
